FAERS Safety Report 19020144 (Version 9)
Quarter: 2022Q1

REPORT INFORMATION
  Report Type: Report from Study
  Country: DE (occurrence: DE)
  Receive Date: 20210317
  Receipt Date: 20220314
  Transmission Date: 20220423
  Serious: Yes (Other)
  Sender: FDA-Public Use
  Company Number: DE-PFM-2021-00324

PATIENT
  Age: 55 Year
  Sex: Female
  Weight: 53 kg

DRUGS (15)
  1. ENCORAFENIB [Suspect]
     Active Substance: ENCORAFENIB
     Indication: Malignant melanoma
     Dosage: 450 MG/1 X PER DAY
     Route: 048
     Dates: start: 20200929, end: 20210803
  2. ENCORAFENIB [Suspect]
     Active Substance: ENCORAFENIB
     Dosage: 225 MG/1 X PER DAY
     Route: 048
     Dates: start: 20210808, end: 20210818
  3. ENCORAFENIB [Suspect]
     Active Substance: ENCORAFENIB
     Dosage: 450 MG/1 X PER DAY
     Route: 048
     Dates: start: 20210818, end: 20210822
  4. ENCORAFENIB [Suspect]
     Active Substance: ENCORAFENIB
     Dosage: 225 MG/1 X PER DAY
     Route: 048
     Dates: start: 20210823, end: 20210825
  5. ENCORAFENIB [Suspect]
     Active Substance: ENCORAFENIB
     Dosage: 450 MG/1 X PER DAY
     Route: 048
     Dates: start: 20210826, end: 20211109
  6. ENCORAFENIB [Suspect]
     Active Substance: ENCORAFENIB
     Dosage: 300 MG/1 X PER DAY
     Route: 048
     Dates: start: 20211110
  7. BINIMETINIB [Suspect]
     Active Substance: BINIMETINIB
     Indication: Malignant melanoma
     Dosage: 45 MG, BID (2/DAY)
     Route: 048
     Dates: start: 20200929, end: 20201203
  8. BINIMETINIB [Suspect]
     Active Substance: BINIMETINIB
     Dosage: 22.5 MG, BID (2/DAY)
     Route: 048
     Dates: start: 20201207, end: 20201229
  9. BINIMETINIB [Suspect]
     Active Substance: BINIMETINIB
     Dosage: 30 MG/2 X PER DAY
     Route: 048
     Dates: start: 20201230, end: 20210420
  10. BINIMETINIB [Suspect]
     Active Substance: BINIMETINIB
     Dosage: 45 MG, QD (1/DAY)
     Route: 048
     Dates: start: 20210421, end: 20210803
  11. BINIMETINIB [Suspect]
     Active Substance: BINIMETINIB
     Dosage: 22.5 MG, BID (2/DAY)
     Route: 048
     Dates: start: 20210808, end: 20210823
  12. FORTECORTIN [DEXAMETHASONE SODIUM PHOSPHATE] [Concomitant]
     Indication: Metastases to central nervous system
     Dosage: UNK
     Route: 065
  13. INSULIN HUMAN [Concomitant]
     Active Substance: INSULIN HUMAN
     Dosage: UNK
     Route: 065
  14. VAXZEVRIA [Concomitant]
     Active Substance: AZD-1222
     Indication: COVID-19
     Dosage: UNK
     Route: 065
     Dates: start: 20210506, end: 20210506
  15. COMIRNATY [Concomitant]
     Active Substance: TOZINAMERAN
     Indication: COVID-19
     Dosage: UNK
     Route: 065
     Dates: start: 20210508, end: 20210508

REACTIONS (11)
  - Retinal detachment [Not Recovered/Not Resolved]
  - Blood creatine phosphokinase increased [Recovered/Resolved]
  - Blood creatine phosphokinase increased [Recovered/Resolved]
  - Dark circles under eyes [Recovered/Resolved]
  - Gamma-glutamyltransferase increased [Recovered/Resolved]
  - Alanine aminotransferase increased [Recovered/Resolved]
  - Hyperkeratosis [Not Recovered/Not Resolved]
  - Restlessness [Not Recovered/Not Resolved]
  - Neoplasm progression [Recovered/Resolved]
  - Prescribed underdose [Unknown]
  - Off label use [Recovered/Resolved]

NARRATIVE: CASE EVENT DATE: 20200930
